FAERS Safety Report 8514675-9 (Version None)
Quarter: 2012Q3

REPORT INFORMATION
  Report Type: 
  Country: None (occurrence: None)
  Receive Date: 20120717
  Receipt Date: 20120706
  Transmission Date: 20120928
  Serious: Yes (Hospitalization, Other)
  Sender: FDA-Public Use
  Company Number: US-BAYER-2012-068356

PATIENT
  Age: 33 Year
  Sex: Female
  Weight: 65.306 kg

DRUGS (14)
  1. FLONASE [Concomitant]
     Indication: EUSTACHIAN TUBE DYSFUNCTION
     Dosage: 16 MG, UNK  LAST FILLED: 30-SEP-2009
     Route: 045
  2. LYRICA [Concomitant]
     Dosage: TK ONE C PO QHS (DAILY AT BEDTIME) FOR 5 DAYS, AND THEN INCREASE DOSAGE TO ONE C PO BID
  3. PROPOXYPHENE NAPSYLATE W/ ACETAMINOPHEN [Concomitant]
     Indication: PAIN
     Dosage: 650 MG, 1/2 TO 1 TABLET EVERY 6 HRS AS NEEDED
     Route: 048
  4. PREDNISONE [Concomitant]
     Dosage: 5 MG, UNK
  5. OXYCODONE HCL AND ACETAMINOPHEN [Concomitant]
     Indication: PAIN
     Dosage: 5 MG/ 325 MG  1 TO 2 TABLETS EVERY 8 HOURS AS NEEDED
     Route: 048
  6. PROMETHAZINE [Concomitant]
     Indication: NAUSEA
     Dosage: 25 MG EVERY 6 HOURS AND PRN
  7. YAZ [Suspect]
     Indication: ACNE
  8. LYRICA [Concomitant]
     Dosage: 50 MG HS
     Route: 048
  9. VICODIN [Concomitant]
     Dosage: UNK UNK, PRN
  10. AZITHROMYCIN [Concomitant]
     Dosage: 250 MG, UNK
  11. CEFDINIR [Concomitant]
     Dosage: 300 MG, 2 CAPSULES DAILY
     Route: 048
  12. PROMETHAZINE [Concomitant]
     Indication: VOMITING
  13. VALTREX [Concomitant]
     Dosage: 1 MG, BID
     Route: 048
  14. ALPRAZOLAM [Concomitant]
     Indication: PANIC REACTION
     Dosage: 0.25 MG, 1 TO 2 TABLETS BID
     Route: 048

REACTIONS (16)
  - PULMONARY FIBROSIS [None]
  - GAIT DISTURBANCE [None]
  - DEPRESSION [None]
  - ANXIETY [None]
  - WEIGHT INCREASED [None]
  - PANIC ATTACK [None]
  - PARAESTHESIA [None]
  - DEEP VEIN THROMBOSIS [None]
  - NAUSEA [None]
  - PAIN IN EXTREMITY [None]
  - INJURY [None]
  - DYSPNOEA [None]
  - CHEST PAIN [None]
  - EMOTIONAL DISTRESS [None]
  - PULMONARY EMBOLISM [None]
  - OEDEMA PERIPHERAL [None]
